FAERS Safety Report 14813105 (Version 2)
Quarter: 2018Q2

REPORT INFORMATION
  Report Type: Spontaneous
  Country: US (occurrence: US)
  Receive Date: 20180426
  Receipt Date: 20180607
  Transmission Date: 20180711
  Serious: No
  Sender: FDA-Public Use
  Company Number: US-HORIZON-PEN-0285-2018

PATIENT
  Age: 83 Year
  Sex: Female

DRUGS (2)
  1. ASPIRIN. [Concomitant]
     Active Substance: ASPIRIN
  2. PENNSAID [Suspect]
     Active Substance: DICLOFENAC SODIUM
     Indication: MEDIAL TIBIAL STRESS SYNDROME
     Dosage: 1 PACKET BID
     Dates: start: 20180412, end: 20180415

REACTIONS (4)
  - Intentional product misuse [Unknown]
  - Off label use [Unknown]
  - Dizziness [Recovered/Resolved]
  - Rash [Recovered/Resolved]

NARRATIVE: CASE EVENT DATE: 2018
